FAERS Safety Report 13058456 (Version 1)
Quarter: 2016Q4

REPORT INFORMATION
  Report Type: Spontaneous
  Country: US (occurrence: US)
  Receive Date: 20161223
  Receipt Date: 20161223
  Transmission Date: 20170207
  Serious: No
  Sender: FDA-Public Use
  Company Number: US-BAUSCH-BL-2016-004602

PATIENT
  Age: 66 Year
  Sex: Female

DRUGS (1)
  1. XENAZINE [Suspect]
     Active Substance: TETRABENAZINE
     Indication: HUNTINGTON^S DISEASE
     Route: 048

REACTIONS (4)
  - Bite [Unknown]
  - Drug dose omission [Unknown]
  - Restlessness [Unknown]
  - Contusion [Unknown]

NARRATIVE: CASE EVENT DATE: 201602
